FAERS Safety Report 4367615-0 (Version None)
Quarter: 2004Q2

REPORT INFORMATION
  Report Type: 
  Country: None (occurrence: None)
  Receive Date: 20040526
  Receipt Date: 20040324
  Transmission Date: 20050107
  Serious: No
  Sender: FDA-Public Use
  Company Number: 2004US002078

PATIENT
  Age: 40 Year
  Sex: Female
  Weight: 87.1 kg

DRUGS (5)
  1. ALOXI [Suspect]
     Indication: PROPHYLAXIS OF NAUSEA AND VOMITING
     Dosage: 0.25 MG, SINGLE, INTRAVENOUS
     Route: 042
     Dates: start: 20040319, end: 20040319
  2. ATIVAN [Concomitant]
  3. DECADRON [Concomitant]
  4. CYTOXAN [Concomitant]
  5. ADRIAMYCIN PFS [Concomitant]

REACTIONS (1)
  - INFUSION SITE BURNING [None]
